FAERS Safety Report 5754019-9 (Version None)
Quarter: 2008Q2

REPORT INFORMATION
  Report Type: 
  Country: None (occurrence: None)
  Receive Date: 20080530
  Receipt Date: 20080519
  Transmission Date: 20081010
  Serious: Yes (Death, Hospitalization)
  Sender: FDA-Public Use
  Company Number: DE-ROCHE-563238

PATIENT
  Sex: Female

DRUGS (6)
  1. XELODA [Suspect]
     Dosage: INDICATION REPORTED ^BRAIN METASTASIS, METASTATIC BREAST CANCER^, DOSE REPORTED: 2000 MG/M2 CYCLIC
     Route: 048
     Dates: start: 20080301
  2. LAPATINIB [Suspect]
     Dosage: INDICATION REPORTED ^BRAIN METASTASIS, METASTATIC BREAST CANCER^
     Route: 048
     Dates: start: 20080301
  3. FUROSEMIDE [Suspect]
     Route: 048
     Dates: start: 20080418
  4. VALPROATE SODIUM [Concomitant]
     Dates: start: 20070501
  5. LEVETIRACETAM [Concomitant]
     Dates: start: 20070501
  6. PREDNISONE TAB [Concomitant]
     Dates: start: 20070501

REACTIONS (3)
  - DYSPNOEA [None]
  - HYPOCALCAEMIA [None]
  - HYPOKALAEMIA [None]
